FAERS Safety Report 11992520 (Version 1)
Quarter: 2016Q1

REPORT INFORMATION
  Report Type: Spontaneous
  Country: US (occurrence: None)
  Receive Date: 20160202
  Receipt Date: 20160202
  Transmission Date: 20160526
  Serious: Yes (Other)
  Sender: FDA-Public Use
  Company Number: None

PATIENT
  Age: 42 Year
  Sex: Female
  Weight: 57.61 kg

DRUGS (1)
  1. EQUATE ACETAMINOPHEN [Suspect]
     Active Substance: ACETAMINOPHEN
     Indication: PAIN IN JAW
     Route: 048
     Dates: start: 20160130, end: 20160131

REACTIONS (5)
  - Somnolence [None]
  - Feeling abnormal [None]
  - Hyperhidrosis [None]
  - Nightmare [None]
  - Emotional distress [None]

NARRATIVE: CASE EVENT DATE: 20160130
